FAERS Safety Report 5482457-0 (Version None)
Quarter: 2007Q4

REPORT INFORMATION
  Report Type: 
  Country: None (occurrence: None)
  Receive Date: 20071011
  Receipt Date: 20071005
  Transmission Date: 20080405
  Serious: Yes (Death)
  Sender: FDA-Public Use
  Company Number: ZW-GILEAD-2006-0010367

PATIENT
  Age: 29 Year
  Sex: Female

DRUGS (9)
  1. EMTRICITABINE [Suspect]
     Indication: HIV INFECTION
     Route: 048
     Dates: start: 20060905, end: 20060922
  2. TENOFOVIR DISOPROXIL FUMARATE [Suspect]
     Indication: HIV INFECTION
     Route: 048
     Dates: start: 20060905, end: 20060922
  3. NEVIRAPINE [Concomitant]
     Indication: HIV INFECTION
     Route: 048
     Dates: start: 20060905, end: 20060922
  4. ISONIAZID [Concomitant]
     Indication: TUBERCULOSIS
     Dates: start: 20060914
  5. RIFAMPICIN [Concomitant]
     Indication: TUBERCULOSIS
     Dates: start: 20060914
  6. PYRAZINAMIDE [Concomitant]
     Indication: TUBERCULOSIS
     Dates: start: 20060914
  7. ETHAMBUTOL HCL [Concomitant]
     Indication: TUBERCULOSIS
     Dates: start: 20060914
  8. AMOXYL [Concomitant]
     Indication: INFLUENZA
     Dates: start: 20060905
  9. PARACETAMOL [Concomitant]
     Indication: INFLUENZA
     Dates: start: 20060905

REACTIONS (1)
  - TUBERCULOUS PLEURISY [None]
